FAERS Safety Report 9707923 (Version 1)
Quarter: 2013Q4

REPORT INFORMATION
  Report Type: Spontaneous
  Country: US (occurrence: None)
  Receive Date: 20131122
  Receipt Date: 20131122
  Transmission Date: 20140711
  Serious: Yes (Hospitalization)
  Sender: FDA-Public Use
  Company Number: None

PATIENT
  Age: 65 Year
  Sex: Female
  Weight: 82.9 kg

DRUGS (4)
  1. COUMADIN [Suspect]
     Indication: THROMBECTOMY
     Dates: start: 20131114, end: 20131120
  2. LOVENOX [Concomitant]
  3. ASA 81 MG [Concomitant]
  4. PREDNISONE [Concomitant]

REACTIONS (1)
  - Gastrointestinal haemorrhage [None]
